FAERS Safety Report 19971944 (Version 3)
Quarter: 2021Q4

REPORT INFORMATION
  Report Type: Spontaneous
  Country: CR (occurrence: CR)
  Receive Date: 20211019
  Receipt Date: 20211214
  Transmission Date: 20220303
  Serious: Yes (Other)
  Sender: FDA-Public Use
  Company Number: CR-ORGANON-O2110CRI001748

PATIENT
  Age: 17 Year
  Sex: Female

DRUGS (1)
  1. ETONOGESTREL [Suspect]
     Active Substance: ETONOGESTREL
     Dosage: 68 MILLIGRAM ROD IN THE ARM
     Route: 058

REACTIONS (4)
  - Device expulsion [Recovered/Resolved]
  - Implant site infection [Recovered/Resolved]
  - Complication of device insertion [Recovered/Resolved]
  - Device use issue [Unknown]
